FAERS Safety Report 23633248 (Version 4)
Quarter: 2024Q2

REPORT INFORMATION
  Report Type: Spontaneous
  Country: GB (occurrence: GB)
  Receive Date: 20240314
  Receipt Date: 20240404
  Transmission Date: 20240715
  Serious: Yes (Disabling, Other)
  Sender: FDA-Public Use
  Company Number: GB-009507513-2403GBR004055

PATIENT
  Age: 70 Year
  Sex: Female
  Weight: 58.7 kg

DRUGS (5)
  1. PEMBROLIZUMAB [Suspect]
     Active Substance: PEMBROLIZUMAB
     Indication: Endometrial cancer recurrent
     Dosage: 200 MILLIGRAM, Q3W
     Route: 042
     Dates: start: 20231214, end: 20240226
  2. PEMBROLIZUMAB [Suspect]
     Active Substance: PEMBROLIZUMAB
     Dosage: 200 MILLIGRAM, Q3W
     Route: 042
     Dates: start: 20240318
  3. LENVATINIB MESYLATE [Suspect]
     Active Substance: LENVATINIB MESYLATE
     Indication: Endometrial cancer recurrent
     Dosage: 14 MILLIGRAM
     Route: 048
     Dates: start: 202312
  4. LENVATINIB MESYLATE [Suspect]
     Active Substance: LENVATINIB MESYLATE
     Dosage: 10 MILLIGRAM
     Route: 048
     Dates: start: 20240205
  5. LENVATINIB MESYLATE [Suspect]
     Active Substance: LENVATINIB MESYLATE
     Dosage: 8 MILLIGRAM
     Route: 048

REACTIONS (9)
  - Immune-mediated neuropathy [Recovered/Resolved]
  - Cold dysaesthesia [Recovering/Resolving]
  - Peripheral coldness [Recovered/Resolved]
  - Dry skin [Recovering/Resolving]
  - Hypertension [Unknown]
  - Oral toxicity [Unknown]
  - Fatigue [Unknown]
  - Mouth ulceration [Unknown]
  - Product use issue [Unknown]

NARRATIVE: CASE EVENT DATE: 20231201
